FAERS Safety Report 23393515 (Version 4)
Quarter: 2024Q2

REPORT INFORMATION
  Report Type: Spontaneous
  Country: US (occurrence: US)
  Receive Date: 20240111
  Receipt Date: 20240513
  Transmission Date: 20240715
  Serious: Yes (Death, Other)
  Sender: FDA-Public Use
  Company Number: US-PFIZER INC-PV202400003926

PATIENT
  Age: 85 Year
  Sex: Female
  Weight: 54.422 kg

DRUGS (3)
  1. XELJANZ [Suspect]
     Active Substance: TOFACITINIB CITRATE
     Indication: Rheumatoid arthritis
     Dosage: 5 MG
  2. METHOTREXATE SODIUM [Suspect]
     Active Substance: METHOTREXATE SODIUM
     Indication: Rheumatoid arthritis
  3. ORENCIA [Suspect]
     Active Substance: ABATACEPT
     Indication: Rheumatoid arthritis

REACTIONS (6)
  - Femur fracture [Fatal]
  - Fall [Fatal]
  - Dementia [Not Recovered/Not Resolved]
  - Muscle rupture [Unknown]
  - Drug ineffective [Unknown]
  - General physical health deterioration [Unknown]
